FAERS Safety Report 7286130-8 (Version None)
Quarter: 2011Q1

REPORT INFORMATION
  Report Type: 
  Country: None (occurrence: None)
  Receive Date: 20110210
  Receipt Date: 20110207
  Transmission Date: 20110831
  Serious: Yes (Hospitalization)
  Sender: FDA-Public Use
  Company Number: DE-PFIZER INC-DE-WYE-H15572610

PATIENT
  Age: 9 Month
  Sex: Male
  Weight: 10.5 kg

DRUGS (6)
  1. MOROCTOCOG ALFA [Suspect]
     Indication: FACTOR VIII DEFICIENCY
     Dosage: 560 IU, 3X/WK
     Route: 042
     Dates: start: 20100416, end: 20100601
  2. MOROCTOCOG ALFA [Suspect]
     Dosage: 1250 IU, 2X/DAY
     Route: 042
     Dates: start: 20100615, end: 20100620
  3. MOROCTOCOG ALFA [Suspect]
     Dosage: 1500 IU, 2X/DAY
     Route: 042
     Dates: start: 20100716, end: 20100927
  4. MOROCTOCOG ALFA [Suspect]
     Dosage: 2000 IU, 2X/DAY
     Route: 042
     Dates: start: 20100928
  5. MOROCTOCOG ALFA [Suspect]
     Dosage: 1000 IU, 2X/DAY
     Route: 042
     Dates: start: 20100614, end: 20100614
  6. MOROCTOCOG ALFA [Suspect]
     Dosage: 1000 IU, 2X/DAY
     Route: 042
     Dates: start: 20100621, end: 20100715

REACTIONS (1)
  - FACTOR VIII INHIBITION [None]
